FAERS Safety Report 11096413 (Version 1)
Quarter: 2015Q2

REPORT INFORMATION
  Report Type: Spontaneous
  Country: US (occurrence: US)
  Receive Date: 20150507
  Receipt Date: 20150507
  Transmission Date: 20150821
  Serious: Yes (Other)
  Sender: FDA-Public Use
  Company Number: US-ASTRAZENECA-2009BM01629

PATIENT
  Age: 21769 Day
  Sex: Female
  Weight: 77.1 kg

DRUGS (9)
  1. GLUCOPHAGE [Concomitant]
     Active Substance: METFORMIN HYDROCHLORIDE
     Dosage: TWO TIMES A DAY
  2. BYETTA [Suspect]
     Active Substance: EXENATIDE
     Indication: TYPE 2 DIABETES MELLITUS
     Route: 058
     Dates: start: 2008
  3. INSULIN [Concomitant]
     Active Substance: INSULIN NOS
     Route: 058
  4. NOVOLOG [Concomitant]
     Active Substance: INSULIN ASPART
  5. BYETTA [Suspect]
     Active Substance: EXENATIDE
     Indication: TYPE 2 DIABETES MELLITUS
     Dosage: 0.25 MG/ML, 5 MCG TWO TIMES A DAY
     Route: 058
     Dates: start: 2008, end: 20080521
  6. LANTUS [Concomitant]
     Active Substance: INSULIN GLARGINE
  7. BYETTA [Suspect]
     Active Substance: EXENATIDE
     Indication: TYPE 2 DIABETES MELLITUS
     Route: 058
  8. BYETTA [Suspect]
     Active Substance: EXENATIDE
     Indication: TYPE 2 DIABETES MELLITUS
     Dosage: 0.25 MG/ML, 10 MCG TWO TIMES A DAY
     Route: 058
     Dates: start: 20080521
  9. HIGH BLOOD PRESSURE [Concomitant]
     Indication: HYPERTENSION

REACTIONS (3)
  - Fall [Unknown]
  - Joint dislocation [Unknown]
  - Weight decreased [Unknown]

NARRATIVE: CASE EVENT DATE: 20080521
